FAERS Safety Report 18122859 (Version 2)
Quarter: 2020Q3

REPORT INFORMATION
  Report Type: Spontaneous
  Country: US (occurrence: US)
  Receive Date: 20200807
  Receipt Date: 20200817
  Transmission Date: 20201103
  Serious: Yes (Hospitalization, Other)
  Sender: FDA-Public Use
  Company Number: US-ELI_LILLY_AND_COMPANY-US202008001032

PATIENT
  Sex: Female

DRUGS (7)
  1. BASAGLAR [Suspect]
     Active Substance: INSULIN GLARGINE
     Indication: DIABETES MELLITUS
     Dosage: 50 U, AFTER MIDDAY AT NIGHT TIME
     Route: 058
  2. BASAGLAR [Suspect]
     Active Substance: INSULIN GLARGINE
     Indication: DIVERTICULUM OESOPHAGEAL
  3. BASAGLAR [Suspect]
     Active Substance: INSULIN GLARGINE
     Indication: DYSPHAGIA
  4. NOVOLOG [Concomitant]
     Active Substance: INSULIN ASPART
     Indication: DIABETES MELLITUS
     Dosage: UNK UNK, PRN (4 TIMES A DAY)
  5. BASAGLAR [Suspect]
     Active Substance: INSULIN GLARGINE
     Indication: DIVERTICULUM OESOPHAGEAL
  6. BASAGLAR [Suspect]
     Active Substance: INSULIN GLARGINE
     Indication: DYSPHAGIA
  7. BASAGLAR [Suspect]
     Active Substance: INSULIN GLARGINE
     Indication: DIABETES MELLITUS
     Dosage: 50 U, AFTER MIDDAY AT NIGHT TIME
     Route: 058

REACTIONS (4)
  - Illness [Not Recovered/Not Resolved]
  - Renal failure [Not Recovered/Not Resolved]
  - Blood glucose increased [Recovering/Resolving]
  - Product dose omission issue [Unknown]

NARRATIVE: CASE EVENT DATE: 2016
